FAERS Safety Report 9557014 (Version 1)
Quarter: 2013Q3

REPORT INFORMATION
  Report Type: Spontaneous
  Country: US (occurrence: None)
  Receive Date: 20130815
  Receipt Date: 20130815
  Transmission Date: 20140515
  Serious: Yes (Other)
  Sender: FDA-Public Use
  Company Number: ADR-2012-02056

PATIENT
  Sex: Female

DRUGS (3)
  1. BACLOFEN INTRATHECAL(BACLOFEN INJECTION) [Suspect]
     Indication: PAIN
  2. DILAUDID (HYDROMORPHONE) [Concomitant]
  3. BUPIVACAINE [Concomitant]

REACTIONS (3)
  - Nausea [None]
  - Pain [None]
  - Muscle spasms [None]
